FAERS Safety Report 24786125 (Version 1)
Quarter: 2024Q4

REPORT INFORMATION
  Report Type: Report from Study
  Country: US (occurrence: US)
  Receive Date: 20241229
  Receipt Date: 20241229
  Transmission Date: 20250114
  Serious: Yes (Hospitalization)
  Sender: JOHNSON AND JOHNSON
  Company Number: US-JNJFOC-20241252603

PATIENT
  Age: 72 Year
  Sex: Female

DRUGS (2)
  1. SPRAVATO [Suspect]
     Active Substance: ESKETAMINE
     Indication: Depression
     Dosage: ?84 MG, 26 TOTAL DOSES?
     Route: 045
     Dates: start: 20240606, end: 20241112
  2. SPRAVATO [Suspect]
     Active Substance: ESKETAMINE
     Dosage: ?56 MG, 1 TOTAL DOSES?
     Route: 045
     Dates: start: 20240604, end: 20240604

REACTIONS (3)
  - Renal impairment [Unknown]
  - Renal haemorrhage [Unknown]
  - Overdose [Unknown]

NARRATIVE: CASE EVENT DATE: 20241101
